FAERS Safety Report 25518778 (Version 1)
Quarter: 2025Q3

REPORT INFORMATION
  Report Type: Spontaneous
  Country: EU (occurrence: EU)
  Receive Date: 20250704
  Receipt Date: 20250704
  Transmission Date: 20251021
  Serious: Yes (Hospitalization, Other)
  Sender: SANDOZ
  Company Number: EU-MLMSERVICE-20171221-1011632-2

PATIENT
  Age: 22 Year
  Sex: Male

DRUGS (34)
  1. ALKERAN [Suspect]
     Active Substance: MELPHALAN
     Indication: Blastic plasmacytoid dendritic cell neoplasia
     Route: 042
  2. CYTARABINE [Suspect]
     Active Substance: CYTARABINE
     Indication: Acute lymphocytic leukaemia
     Route: 037
     Dates: start: 201504, end: 2015
  3. CYTARABINE [Suspect]
     Active Substance: CYTARABINE
     Route: 037
     Dates: start: 201506
  4. CYTARABINE [Suspect]
     Active Substance: CYTARABINE
     Indication: Blastic plasmacytoid dendritic cell neoplasia
     Route: 065
     Dates: start: 201503, end: 201503
  5. CYTARABINE [Suspect]
     Active Substance: CYTARABINE
     Route: 037
     Dates: start: 201506, end: 2015
  6. CYTARABINE [Suspect]
     Active Substance: CYTARABINE
     Route: 042
     Dates: start: 201504
  7. CYTARABINE [Suspect]
     Active Substance: CYTARABINE
     Route: 042
     Dates: start: 201503
  8. CYCLOPHOSPHAMIDE [Suspect]
     Active Substance: CYCLOPHOSPHAMIDE
     Indication: Blastic plasmacytoid dendritic cell neoplasia
     Route: 065
     Dates: start: 201504, end: 2015
  9. CYCLOPHOSPHAMIDE [Suspect]
     Active Substance: CYCLOPHOSPHAMIDE
     Indication: Acute lymphocytic leukaemia
     Route: 065
     Dates: start: 201503, end: 2015
  10. DEXAMETHASONE [Suspect]
     Active Substance: DEXAMETHASONE
     Indication: Acute lymphocytic leukaemia
     Route: 037
     Dates: start: 201503, end: 201503
  11. DEXAMETHASONE [Suspect]
     Active Substance: DEXAMETHASONE
     Route: 037
     Dates: start: 201506
  12. DEXAMETHASONE [Suspect]
     Active Substance: DEXAMETHASONE
     Dosage: 16 MG, QD
     Route: 042
  13. DEXAMETHASONE [Suspect]
     Active Substance: DEXAMETHASONE
     Indication: Blastic plasmacytoid dendritic cell neoplasia
     Route: 037
     Dates: start: 201504, end: 2015
  14. DEXAMETHASONE [Suspect]
     Active Substance: DEXAMETHASONE
     Route: 065
     Dates: start: 201503
  15. DEXAMETHASONE [Suspect]
     Active Substance: DEXAMETHASONE
     Route: 065
     Dates: start: 201506
  16. DAUNORUBICIN [Suspect]
     Active Substance: DAUNORUBICIN
     Indication: Acute lymphocytic leukaemia
     Route: 065
     Dates: start: 201503, end: 2015
  17. ETOPOSIDE [Suspect]
     Active Substance: ETOPOSIDE
     Indication: Acute lymphocytic leukaemia
     Route: 042
     Dates: start: 201506
  18. ETOPOSIDE [Suspect]
     Active Substance: ETOPOSIDE
     Indication: Blastic plasmacytoid dendritic cell neoplasia
  19. FLUDARABINE [Suspect]
     Active Substance: FLUDARABINE PHOSPHATE
     Indication: Blastic plasmacytoid dendritic cell neoplasia
     Route: 042
  20. METHOTREXATE SODIUM [Suspect]
     Active Substance: METHOTREXATE SODIUM
     Indication: Blastic plasmacytoid dendritic cell neoplasia
     Route: 037
     Dates: start: 201504
  21. METHOTREXATE SODIUM [Suspect]
     Active Substance: METHOTREXATE SODIUM
     Route: 037
     Dates: start: 201506
  22. METHOTREXATE SODIUM [Suspect]
     Active Substance: METHOTREXATE SODIUM
     Route: 065
     Dates: start: 201506
  23. METHOTREXATE SODIUM [Suspect]
     Active Substance: METHOTREXATE SODIUM
     Indication: Acute lymphocytic leukaemia
     Route: 042
     Dates: start: 201503, end: 201503
  24. MERCAPTOPURINE [Suspect]
     Active Substance: MERCAPTOPURINE
     Indication: Blastic plasmacytoid dendritic cell neoplasia
     Route: 065
     Dates: start: 201504
  25. MERCAPTOPURINE [Suspect]
     Active Substance: MERCAPTOPURINE
     Indication: Acute lymphocytic leukaemia
  26. PEGASPARGASE [Suspect]
     Active Substance: PEGASPARGASE
     Indication: Acute lymphocytic leukaemia
     Route: 065
     Dates: start: 201503, end: 201504
  27. THYMOGLOBULINE [Suspect]
     Active Substance: LAPINE T-LYMPHOCYTE IMMUNE GLOBULIN
     Indication: Blastic plasmacytoid dendritic cell neoplasia
     Route: 042
  28. VINCRISTINE [Suspect]
     Active Substance: VINCRISTINE
     Indication: Blastic plasmacytoid dendritic cell neoplasia
     Route: 037
     Dates: start: 201506
  29. VINCRISTINE [Suspect]
     Active Substance: VINCRISTINE
     Indication: Acute lymphocytic leukaemia
     Route: 065
     Dates: start: 201503, end: 201504
  30. VINDESINE [Suspect]
     Active Substance: VINDESINE
     Indication: Acute lymphocytic leukaemia
     Route: 042
     Dates: start: 201506
  31. VINDESINE [Suspect]
     Active Substance: VINDESINE
     Indication: Blastic plasmacytoid dendritic cell neoplasia
     Route: 042
  32. CYCLOSPORINE [Concomitant]
     Active Substance: CYCLOSPORINE
     Indication: Prophylaxis against graft versus host disease
     Dosage: 6 MG/KG, QD
     Route: 048
  33. CYCLOSPORINE [Concomitant]
     Active Substance: CYCLOSPORINE
     Route: 048
  34. MYCOPHENOLATE MOFETIL [Concomitant]
     Active Substance: MYCOPHENOLATE MOFETIL
     Indication: Prophylaxis against graft versus host disease
     Dosage: 30 MG/KG, QD
     Route: 042

REACTIONS (6)
  - Gastroenteritis clostridial [Recovered/Resolved]
  - Drug-induced liver injury [Recovered/Resolved]
  - Liver disorder [Recovering/Resolving]
  - Odynophagia [Recovered/Resolved]
  - Stomatitis [Recovered/Resolved]
  - Product use in unapproved indication [Unknown]

NARRATIVE: CASE EVENT DATE: 20150701
